FAERS Safety Report 9596927 (Version 2)
Quarter: 2013Q4

REPORT INFORMATION
  Report Type: Spontaneous
  Country: US (occurrence: US)
  Receive Date: 20131004
  Receipt Date: 20131004
  Transmission Date: 20140711
  Serious: Yes (Other)
  Sender: FDA-Public Use
  Company Number: US-ROCHE-1216721

PATIENT
  Age: 59 Year
  Sex: Male

DRUGS (4)
  1. ERIVEDGE [Suspect]
     Indication: LUNG NEOPLASM MALIGNANT
     Route: 048
     Dates: start: 20130226, end: 20130913
  2. TYLENOL [Concomitant]
  3. LORAZEPAM [Concomitant]
  4. AMITRIPTYLINE [Concomitant]

REACTIONS (2)
  - Muscle spasms [Not Recovered/Not Resolved]
  - Disease progression [Unknown]
